FAERS Safety Report 8595659-1 (Version None)
Quarter: 2012Q3

REPORT INFORMATION
  Report Type: 
  Country: None (occurrence: None)
  Receive Date: 20120815
  Receipt Date: 20120809
  Transmission Date: 20120928
  Serious: Yes (Other)
  Sender: FDA-Public Use
  Company Number: AU-PFIZER INC-2012149197

PATIENT
  Age: 70 Year
  Sex: Female

DRUGS (1)
  1. SUTENT [Suspect]
     Indication: THYROID CANCER METASTATIC
     Dosage: 37.5 MG, 1X/DAY 4 WEEKS ON, 2 WEEKS OFF
     Route: 048
     Dates: start: 20110201

REACTIONS (4)
  - OSTEOPOROTIC FRACTURE [None]
  - HYPOTENSION [None]
  - DIARRHOEA [None]
  - FALL [None]
